FAERS Safety Report 6998875-5 (Version None)
Quarter: 2010Q3

REPORT INFORMATION
  Report Type: 
  Country: None (occurrence: None)
  Receive Date: 20100920
  Receipt Date: 20090730
  Transmission Date: 20110219
  Serious: No
  Sender: FDA-Public Use
  Company Number: US-ASTRAZENECA-2009SE06376

PATIENT
  Age: 32 Year
  Sex: Female
  Weight: 83.5 kg

DRUGS (1)
  1. SEROQUEL [Suspect]
     Route: 048

REACTIONS (4)
  - DYSARTHRIA [None]
  - EYE ROLLING [None]
  - SOMNOLENCE [None]
  - VISION BLURRED [None]
